FAERS Safety Report 15035298 (Version 1)
Quarter: 2018Q2

REPORT INFORMATION
  Report Type: Spontaneous
  Country: US (occurrence: US)
  Receive Date: 20180529
  Receipt Date: 20180529
  Transmission Date: 20180711
  Serious: Yes (Hospitalization, Other)
  Sender: FDA-Public Use
  Company Number: None

PATIENT
  Age: 69 Year
  Sex: Male

DRUGS (2)
  1. BUPIVACAINE. [Suspect]
     Active Substance: BUPIVACAINE
     Indication: SURGERY
     Dates: start: 20180202, end: 20180202
  2. LIDOCAINE. [Suspect]
     Active Substance: LIDOCAINE
     Indication: SURGERY
     Dates: start: 20180202, end: 20180202

REACTIONS (3)
  - Bronchospasm [None]
  - Hallucination, visual [None]
  - Respiratory disorder [None]

NARRATIVE: CASE EVENT DATE: 20180202
